FAERS Safety Report 5226366-0 (Version None)
Quarter: 2007Q1

REPORT INFORMATION
  Report Type: 
  Country: None (occurrence: None)
  Receive Date: 20061201
  Receipt Date: 20061024
  Transmission Date: 20070707
  Serious: No
  Sender: FDA-Public Use
  Company Number: US200610004413

PATIENT
  Sex: Female

DRUGS (2)
  1. CYMBALTA [Suspect]
     Dosage: SEE IMAGE
     Dates: start: 20050801
  2. SOTALOL HCL [Concomitant]

REACTIONS (12)
  - ARRHYTHMIA [None]
  - DISSOCIATION [None]
  - FATIGUE [None]
  - FEELING ABNORMAL [None]
  - HEADACHE [None]
  - HEART RATE IRREGULAR [None]
  - MALAISE [None]
  - NAUSEA [None]
  - PRESCRIBED OVERDOSE [None]
  - STOMACH DISCOMFORT [None]
  - TACHYCARDIA [None]
  - VISUAL DISTURBANCE [None]
